FAERS Safety Report 9469791 (Version 1)
Quarter: 2013Q3

REPORT INFORMATION
  Report Type: Spontaneous
  Country: US (occurrence: None)
  Receive Date: 20130820
  Receipt Date: 20130820
  Transmission Date: 20140515
  Serious: Yes (Other)
  Sender: FDA-Public Use
  Company Number: None

PATIENT
  Sex: Female

DRUGS (2)
  1. ARIMIDEX [Suspect]
     Dosage: 3 YEARS AGO STATED
  2. CRESTOR [Concomitant]

REACTIONS (2)
  - Dizziness [None]
  - Syncope [None]
